FAERS Safety Report 10203403 (Version 3)
Quarter: 2014Q3

REPORT INFORMATION
  Report Type: Spontaneous
  Country: US (occurrence: None)
  Receive Date: 20140523
  Receipt Date: 20140707
  Transmission Date: 20150326
  Serious: Yes (Hospitalization, Other)
  Sender: FDA-Public Use
  Company Number: 2014-US-006096

PATIENT
  Age: 35 Year
  Sex: Female
  Weight: 52.2 kg

DRUGS (15)
  1. CLARITIN [Concomitant]
     Active Substance: LORATADINE
  2. BLEOMYCIN SULFATE [Suspect]
     Active Substance: BLEOMYCIN SULFATE
     Indication: OVARIAN CANCER RECURRENT
     Dates: start: 20140519
  3. MODAFINIL (MODAFINIL) [Concomitant]
     Active Substance: MODAFINIL
  4. XYREM [Suspect]
     Active Substance: SODIUM OXYBATE
     Indication: CATAPLEXY
     Dosage: DOSE ADJUSTMENTS
     Route: 048
     Dates: start: 201403, end: 2014
  5. ETOPOSIDE. [Suspect]
     Active Substance: ETOPOSIDE
     Indication: OVARIAN CANCER RECURRENT
     Dates: start: 20140519
  6. ZOLOFT [Concomitant]
     Active Substance: SERTRALINE HYDROCHLORIDE
  7. LO-OVRAL [Concomitant]
  8. LO/OVRAL (ETHINYLESTRADIOL, NORGESTREL) [Concomitant]
  9. METRONIDAZOLE (METRONIDAZOLE BENZOATE) [Concomitant]
  10. MEDROXYPROGESTERONE ACETATE (MEDROXYPROGESTERONE ACETATE) [Concomitant]
  11. XYREM [Suspect]
     Active Substance: SODIUM OXYBATE
     Indication: NARCOLEPSY
     Dosage: DOSE ADJUSTMENTS
     Route: 048
     Dates: start: 201403, end: 2014
  12. NAPROSYN (NAPROXEN) [Concomitant]
  13. FLUTICASONE PROPIONATE (FLUTICASONE PROPIONATE) [Concomitant]
  14. CISPLATIN. [Suspect]
     Active Substance: CISPLATIN
     Indication: OVARIAN CANCER RECURRENT
     Dates: start: 20140519
  15. PREMARIN (ESTROGENS CONJUGATED) TABLET [Concomitant]

REACTIONS (7)
  - Abdominal discomfort [None]
  - Retroperitoneal lymphadenopathy [None]
  - Decreased appetite [None]
  - Faeces soft [None]
  - Ovarian cancer recurrent [None]
  - Dyspepsia [None]
  - Nausea [None]

NARRATIVE: CASE EVENT DATE: 201403
